FAERS Safety Report 7645275-0 (Version None)
Quarter: 2011Q3

REPORT INFORMATION
  Report Type: 
  Country: None (occurrence: None)
  Receive Date: 20110729
  Receipt Date: 20110707
  Transmission Date: 20111222
  Serious: Yes (Death, Hospitalization)
  Sender: FDA-Public Use
  Company Number: FR-PFIZER INC-2009188791

PATIENT
  Age: 60 Year
  Sex: Female
  Weight: 54 kg

DRUGS (24)
  1. PLACEBO [Suspect]
     Indication: SYSTEMIC CANDIDA
     Dosage: UNK MG, 1X/DAY
     Route: 042
     Dates: start: 20090210, end: 20090223
  2. TRIMEBUTINE MALEATE [Concomitant]
     Dosage: UNK
     Route: 048
     Dates: start: 20090123, end: 20090321
  3. VORICONAZOLE [Suspect]
     Indication: ASPERGILLOSIS
     Dosage: 520 MG, UNK
     Route: 042
     Dates: start: 20090210, end: 20090216
  4. DIAMICRON [Concomitant]
     Dosage: UNK
     Route: 048
     Dates: start: 20090216, end: 20090321
  5. IMOVANE [Concomitant]
     Dosage: UNK
     Route: 048
     Dates: start: 20090216, end: 20090321
  6. BLINDED NO SUBJECT DRUG [Suspect]
     Indication: SYSTEMIC CANDIDA
     Dosage: UNK MG, 1X/DAY
     Route: 042
     Dates: start: 20090210, end: 20090223
  7. PRIMPERAN TAB [Concomitant]
     Dosage: UNK
     Route: 048
     Dates: start: 20090216, end: 20090321
  8. SOLU-MEDROL [Concomitant]
     Dosage: UNK
     Route: 042
     Dates: start: 20090123, end: 20090202
  9. LASIX [Concomitant]
     Dosage: UNK
     Route: 042
     Dates: start: 20090228, end: 20090321
  10. LEXOMIL [Concomitant]
     Dosage: UNK
     Route: 048
     Dates: start: 20090204, end: 20090321
  11. PIPERACILLIN AND TAZOBACTAM [Concomitant]
     Dosage: UNK
     Route: 042
     Dates: start: 20090209, end: 20090216
  12. CIPROFLOXACIN [Concomitant]
     Dosage: UNK
     Route: 042
     Dates: start: 20090204, end: 20090209
  13. BLINDED ANIDULAFUNGIN [Suspect]
     Indication: SYSTEMIC CANDIDA
     Dosage: UNK MG, 1X/DAY
     Route: 042
     Dates: start: 20090210, end: 20090223
  14. NEXIUM [Concomitant]
     Dosage: UNK
     Route: 048
     Dates: start: 20090216, end: 20090321
  15. LOPRESSOR [Concomitant]
     Dosage: UNK
     Route: 048
     Dates: start: 20090216, end: 20090321
  16. VANCOMYCIN HYDROCHLORIDE [Concomitant]
     Dosage: UNK
     Route: 042
     Dates: start: 20090206, end: 20090216
  17. VALACYCLOVIR HYDROCHLORIDE [Concomitant]
     Dosage: UNK
     Route: 048
     Dates: start: 20090216, end: 20090321
  18. TRAMADOL HCL [Concomitant]
     Dosage: UNK
     Route: 048
     Dates: start: 20090216, end: 20090321
  19. SPASFON [Concomitant]
     Dosage: UNK
     Route: 048
     Dates: start: 20090123, end: 20090321
  20. TRANXENE [Concomitant]
     Dosage: UNK
     Route: 048
     Dates: start: 20090123, end: 20090203
  21. ACTRAPID [Concomitant]
     Dosage: UNK
     Route: 048
     Dates: start: 20090123, end: 20090203
  22. CEFTAZIDIME SODIUM [Concomitant]
     Dosage: UNK
     Route: 042
     Dates: start: 20090204, end: 20090209
  23. VORICONAZOLE [Suspect]
     Dosage: 600 MG, UNK
     Route: 048
     Dates: start: 20090217
  24. NEULASTA [Concomitant]
     Dosage: UNK
     Route: 058

REACTIONS (1)
  - DEATH [None]
